FAERS Safety Report 17665703 (Version 2)
Quarter: 2020Q2

REPORT INFORMATION
  Report Type: Spontaneous
  Country: BR (occurrence: BR)
  Receive Date: 20200414
  Receipt Date: 20200414
  Transmission Date: 20200713
  Serious: Yes (Death)
  Sender: FDA-Public Use
  Company Number: BR-PFIZER INC-2020149023

PATIENT
  Age: 37 Year
  Sex: Female

DRUGS (10)
  1. COLISTIN [Concomitant]
     Active Substance: COLISTIN
     Indication: RHODOCOCCUS INFECTION
     Dosage: 2.5 MG/KG, DAILY (2.5 MG/KG/D, QDAY)
     Route: 042
  2. TRIMETHOPRIM SULFAMETHOXAZOLE [Concomitant]
     Active Substance: SULFAMETHOXAZOLE\TRIMETHOPRIM
     Indication: RHODOCOCCUS INFECTION
     Dosage: 15 MG/KG, DAILY (15 MG/KG/D IV Q6H)
     Route: 042
  3. METILPREDNISOLONE [Concomitant]
     Active Substance: METHYLPREDNISOLONE
     Indication: GRAFT VERSUS HOST DISEASE
     Dosage: 90 MG, DAILY
  4. AMPHOTERICIN B, LIPOSOME [Concomitant]
     Active Substance: AMPHOTERICIN B
     Dosage: 300 MG, DAILY
  5. GANCICLOVIR. [Concomitant]
     Active Substance: GANCICLOVIR
     Indication: CYTOMEGALOVIRUS INFECTION REACTIVATION
     Dosage: 2.5 MG/KG, DAILY (2.5 MG/KG/D Q12)
     Route: 042
  6. LINEZOLID. [Suspect]
     Active Substance: LINEZOLID
     Indication: RHODOCOCCUS INFECTION
     Dosage: 600 MG, 2X/DAY (600 MG Q12H)
  7. AMIKACIN. [Suspect]
     Active Substance: AMIKACIN
     Indication: RHODOCOCCUS INFECTION
     Dosage: 15 MG/KG, DAILY (15 MG/KG/D Q24H)
  8. PIPERACILINA + TAZOBACTAM [Concomitant]
     Active Substance: PIPERACILLIN SODIUM\TAZOBACTAM SODIUM
     Indication: RHODOCOCCUS INFECTION
     Dosage: 4.0 MG, 4X/DAY
     Route: 042
  9. AMPHOTERICIN B, LIPOSOME [Concomitant]
     Active Substance: AMPHOTERICIN B
     Dosage: 3 MG/KG, DAILY
  10. MEROPENEM. [Suspect]
     Active Substance: MEROPENEM
     Indication: RHODOCOCCUS INFECTION
     Dosage: 1 G, 2X/DAY (1G IV Q12H)
     Route: 042

REACTIONS (1)
  - Drug ineffective [Fatal]
